FAERS Safety Report 20108121 (Version 4)
Quarter: 2022Q4

REPORT INFORMATION
  Report Type: Spontaneous
  Country: US (occurrence: US)
  Receive Date: 20211124
  Receipt Date: 20221213
  Transmission Date: 20230113
  Serious: No
  Sender: FDA-Public Use
  Company Number: US-PFIZER INC-2021476386

PATIENT
  Age: 53 Year
  Sex: Female

DRUGS (2)
  1. EUCRISA [Suspect]
     Active Substance: CRISABOROLE
     Indication: Eczema
     Dosage: APPLY SMALL AMOUNT TO AFFECTED AREAS TWICE A DAY AS DIRECTED BY PHYSICIAN
     Route: 061
  2. EUCRISA [Suspect]
     Active Substance: CRISABOROLE
     Dosage: APPLY SMALL TO THE AFFECTED SKIN ONCE TO TWICE DAILY AS DIRECTED
     Route: 061

REACTIONS (4)
  - Migraine [Unknown]
  - Skin disorder [Unknown]
  - Skin irritation [Unknown]
  - Off label use [Unknown]
